FAERS Safety Report 11229080 (Version 2)
Quarter: 2017Q3

REPORT INFORMATION
  Report Type: Spontaneous
  Country: US (occurrence: US)
  Receive Date: 20150630
  Receipt Date: 20170920
  Transmission Date: 20171127
  Serious: No
  Sender: FDA-Public Use
  Company Number: US-PFIZER INC-2015213848

PATIENT
  Age: 25 Year
  Sex: Female

DRUGS (3)
  1. SOMAVERT [Suspect]
     Active Substance: PEGVISOMANT
     Dosage: UNK
  2. SOMAVERT [Suspect]
     Active Substance: PEGVISOMANT
     Dosage: 20 MG DAILY X 3 DAYS A WEEK
     Dates: start: 201107
  3. SOMAVERT [Suspect]
     Active Substance: PEGVISOMANT
     Dosage: 50 MG, WEEKLY (ONE DAY A WEEK)

REACTIONS (2)
  - Nausea [Unknown]
  - Product use issue [Unknown]
